FAERS Safety Report 5615590-0 (Version None)
Quarter: 2008Q1

REPORT INFORMATION
  Report Type: 
  Country: None (occurrence: None)
  Receive Date: 20080201
  Receipt Date: 20080124
  Transmission Date: 20080703
  Serious: Yes (Life-Threatening, Other)
  Sender: FDA-Public Use
  Company Number: GXKR2008DE00929

PATIENT
  Age: 22 Year
  Sex: Male

DRUGS (1)
  1. MCP HEXAL (NGX)(METOCLOPRAMIDE) UNKNOWN [Suspect]
     Dosage: ORAL
     Route: 048

REACTIONS (3)
  - ANAPHYLACTIC SHOCK [None]
  - BLOOD PRESSURE INCREASED [None]
  - GLAUCOMA [None]
